FAERS Safety Report 20993477 (Version 1)
Quarter: 2022Q2

REPORT INFORMATION
  Report Type: Spontaneous
  Country: US (occurrence: None)
  Receive Date: 20220621
  Receipt Date: 20220621
  Transmission Date: 20220721
  Serious: Yes (Other)
  Sender: FDA-Public Use
  Company Number: None

PATIENT
  Age: 66 Year
  Sex: Female

DRUGS (1)
  1. BETASERON [Suspect]
     Active Substance: INTERFERON BETA-1B
     Indication: Multiple sclerosis

REACTIONS (4)
  - Drug ineffective [None]
  - Paraesthesia [None]
  - Condition aggravated [None]
  - Therapy change [None]

NARRATIVE: CASE EVENT DATE: 20220621
